FAERS Safety Report 6900716-9 (Version None)
Quarter: 2010Q3

REPORT INFORMATION
  Report Type: 
  Country: None (occurrence: None)
  Receive Date: 20100803
  Receipt Date: 20100720
  Transmission Date: 20110219
  Serious: Yes (Disabling)
  Sender: FDA-Public Use
  Company Number: DK-GENENTECH-301247

PATIENT
  Sex: Male

DRUGS (3)
  1. LUCENTIS [Suspect]
     Indication: CHOROIDAL NEOVASCULARISATION
     Dosage: 0.05 ML, UNKNOWN
     Dates: start: 20050901
  2. LUCENTIS [Suspect]
     Dosage: 0.05 ML, QD
     Dates: start: 20090520
  3. LUCENTIS [Suspect]
     Dosage: 0.05 ML, UNKNOWN
     Route: 031
     Dates: start: 20090721

REACTIONS (3)
  - CEREBRAL INFARCTION [None]
  - HEMIANOPIA HOMONYMOUS [None]
  - RETINAL TEAR [None]
